FAERS Safety Report 21679375 (Version 1)
Quarter: 2022Q4

REPORT INFORMATION
  Report Type: Report from Study
  Country: US (occurrence: US)
  Receive Date: 20221205
  Receipt Date: 20221205
  Transmission Date: 20230113
  Serious: Yes (Hospitalization, Other)
  Sender: FDA-Public Use
  Company Number: US-ABBVIE-4222514

PATIENT

DRUGS (1)
  1. HUMIRA [Suspect]
     Active Substance: ADALIMUMAB
     Indication: Rheumatoid arthritis
     Dosage: CF FORM STRENGTH- 40 MG
     Route: 058

REACTIONS (6)
  - Renal artery stent placement [Unknown]
  - Neoplasm malignant [Unknown]
  - Unevaluable event [Unknown]
  - Infection [Unknown]
  - Kidney infection [Unknown]
  - Patient-device incompatibility [Unknown]
